FAERS Safety Report 17766164 (Version 2)
Quarter: 2020Q3

REPORT INFORMATION
  Report Type: Spontaneous
  Country: CA (occurrence: CA)
  Receive Date: 20200511
  Receipt Date: 20200828
  Transmission Date: 20201102
  Serious: No
  Sender: FDA-Public Use
  Company Number: CA-PFIZER INC-2020184489

PATIENT
  Age: 5 Day
  Sex: Male
  Weight: 2.8 kg

DRUGS (6)
  1. ALPROSTADIL. [Concomitant]
     Active Substance: ALPROSTADIL
     Dosage: 0.05 UG/KG, UNK (0.05 MICROGRAMS/KG/MIN, INFUSION, WEANED OFF ON DOL 6)
     Route: 042
  2. HYDROCORTISONE. [Concomitant]
     Active Substance: HYDROCORTISONE
     Dosage: UP TO 1 MG/KG/DOSE Q8H
     Route: 065
  3. EPINEPHRINE. [Concomitant]
     Active Substance: EPINEPHRINE
     Dosage: 0.05 UG/KG, UNK (0.05 MICROGRAMS/KG/MIN, INFUSION, WEANED OFF ON DOL 6)
     Route: 065
  4. NITRIC OXIDE. [Concomitant]
     Active Substance: NITRIC OXIDE
     Indication: VASCULAR RESISTANCE PULMONARY DECREASED
     Dosage: 20 PPM, WEANED OFF ON DOL 7
  5. SILDENAFIL CITRATE. [Suspect]
     Active Substance: SILDENAFIL CITRATE
     Dosage: 2 MG/KG, 3X/DAY (INCREASED, ON DOL 9, DISCONTINUED ON DOL 48)
     Route: 065
  6. SILDENAFIL CITRATE. [Suspect]
     Active Substance: SILDENAFIL CITRATE
     Indication: PULMONARY HYPERTENSION
     Dosage: 0.25 MG/KG, 3X/DAY

REACTIONS (2)
  - Product use issue [Unknown]
  - Off label use [Unknown]
